FAERS Safety Report 24223934 (Version 2)
Quarter: 2024Q3

REPORT INFORMATION
  Report Type: Spontaneous
  Country: US (occurrence: US)
  Receive Date: 20240819
  Receipt Date: 20240821
  Transmission Date: 20241016
  Serious: Yes (Life-Threatening, Hospitalization, Other)
  Sender: PFIZER
  Company Number: US-MLMSERVICE-20240807-PI154579-00225-1

PATIENT
  Age: 51 Year
  Sex: Male

DRUGS (1)
  1. MINOXIDIL [Suspect]
     Active Substance: MINOXIDIL
     Dosage: 500 MG
     Route: 048

REACTIONS (9)
  - Accidental overdose [Recovered/Resolved]
  - Tachypnoea [Recovered/Resolved]
  - Hypotension [Recovered/Resolved]
  - Hyperdynamic left ventricle [Recovered/Resolved]
  - Distributive shock [Recovered/Resolved]
  - Tachycardia [Recovered/Resolved]
  - Electrocardiogram ST-T segment depression [Recovered/Resolved]
  - Pulmonary oedema [Recovered/Resolved]
  - Electrocardiogram ST segment elevation [Recovered/Resolved]
